FAERS Safety Report 22272486 (Version 1)
Quarter: 2023Q2

REPORT INFORMATION
  Report Type: Spontaneous
  Country: US (occurrence: None)
  Receive Date: 20230502
  Receipt Date: 20230502
  Transmission Date: 20230721
  Serious: No
  Sender: FDA-Public Use
  Company Number: US-Hikma Pharmaceuticals USA Inc.-US-H14001-23-00558

PATIENT
  Sex: Female

DRUGS (1)
  1. KLOXXADO [Suspect]
     Active Substance: NALOXONE HYDROCHLORIDE
     Indication: Asthma
     Dosage: UNKNOWN
     Route: 065

REACTIONS (2)
  - Product dose omission issue [Unknown]
  - Product use in unapproved indication [Unknown]
